FAERS Safety Report 9832428 (Version 3)
Quarter: 2014Q1

REPORT INFORMATION
  Report Type: Spontaneous
  Country: DE (occurrence: DE)
  Receive Date: 20140121
  Receipt Date: 20140122
  Transmission Date: 20141002
  Serious: Yes (Other)
  Sender: FDA-Public Use
  Company Number: DE-PFIZER INC-2013343687

PATIENT
  Age: 66 Year
  Sex: Female
  Weight: 70 kg

DRUGS (4)
  1. TREVILOR RETARD [Suspect]
     Indication: DEPRESSION
     Dosage: 75 MG, 1X/DAY
     Route: 048
     Dates: start: 2008, end: 2013
  2. TREVILOR RETARD [Suspect]
     Dosage: 37.5 MG, 1X/DAY
     Route: 048
     Dates: start: 2013
  3. DUPHASTON [Concomitant]
     Indication: HORMONE REPLACEMENT THERAPY
     Dosage: 10 MG, 1X/DAY
     Route: 048
     Dates: start: 2005
  4. GYNOKADIN GEL [Concomitant]
     Indication: HORMONE REPLACEMENT THERAPY
     Dosage: UNK
     Dates: start: 2005

REACTIONS (5)
  - Pancreatic insufficiency [Not Recovered/Not Resolved]
  - Faecaloma [Unknown]
  - Blood glucose decreased [Unknown]
  - Intervertebral disc degeneration [Unknown]
  - Spondylitis [Unknown]
